FAERS Safety Report 17260627 (Version 3)
Quarter: 2020Q1

REPORT INFORMATION
  Report Type: Spontaneous
  Country: US (occurrence: US)
  Receive Date: 20200113
  Receipt Date: 20200306
  Transmission Date: 20200409
  Serious: No
  Sender: FDA-Public Use
  Company Number: US-BIOGEN-2020BI00825985

PATIENT
  Sex: Female

DRUGS (14)
  1. AVONEX [Suspect]
     Active Substance: INTERFERON BETA-1A
  2. AVONEX [Suspect]
     Active Substance: INTERFERON BETA-1A
  3. AVONEX [Suspect]
     Active Substance: INTERFERON BETA-1A
  4. AVONEX [Suspect]
     Active Substance: INTERFERON BETA-1A
  5. AVONEX [Suspect]
     Active Substance: INTERFERON BETA-1A
     Indication: MULTIPLE SCLEROSIS
     Route: 030
     Dates: start: 20060828, end: 2012
  6. AVONEX [Suspect]
     Active Substance: INTERFERON BETA-1A
  7. AVONEX [Suspect]
     Active Substance: INTERFERON BETA-1A
  8. AVONEX [Suspect]
     Active Substance: INTERFERON BETA-1A
  9. AVONEX [Suspect]
     Active Substance: INTERFERON BETA-1A
  10. AVONEX [Suspect]
     Active Substance: INTERFERON BETA-1A
  11. AVONEX [Suspect]
     Active Substance: INTERFERON BETA-1A
  12. AVONEX [Suspect]
     Active Substance: INTERFERON BETA-1A
  13. VITAMIN D [Concomitant]
     Active Substance: VITAMIN D NOS
     Route: 065
  14. AVONEX [Suspect]
     Active Substance: INTERFERON BETA-1A

REACTIONS (4)
  - Musculoskeletal stiffness [Recovered/Resolved]
  - Muscle spasms [Recovered/Resolved]
  - Musculoskeletal disorder [Unknown]
  - Confusional state [Recovered/Resolved]
